FAERS Safety Report 15842210 (Version 1)
Quarter: 2019Q1

REPORT INFORMATION
  Report Type: Spontaneous
  Country: ES (occurrence: ES)
  Receive Date: 20190118
  Receipt Date: 20190118
  Transmission Date: 20190417
  Serious: Yes (Hospitalization)
  Sender: FDA-Public Use
  Company Number: ES-BAYER-2019-007069

PATIENT
  Age: 88 Year
  Sex: Female
  Weight: 86 kg

DRUGS (8)
  1. ADIRO 100 MG [Suspect]
     Active Substance: ASPIRIN
     Dosage: 100 MG, UNK
     Route: 048
     Dates: start: 20151113, end: 20181215
  2. IMUREL [AZATHIOPRINE SODIUM] [Concomitant]
     Indication: ARTHRITIS
     Dosage: UNK
     Route: 048
  3. FUROSEMIDA CINFA [Concomitant]
     Active Substance: FUROSEMIDE
     Indication: HYPERTENSION
     Dosage: UNK
     Route: 048
  4. ATORVASTATINA CINFA [Concomitant]
     Active Substance: ATORVASTATIN CALCIUM
     Indication: BLOOD CHOLESTEROL INCREASED
     Dosage: 10 MG, QD
     Route: 048
     Dates: start: 20151113, end: 20181215
  5. SERACTIL [Interacting]
     Active Substance: DEXIBUPROFEN
     Indication: ARTHRITIS
     Dosage: 400 MG, QD
     Route: 048
     Dates: start: 20180821, end: 20181215
  6. LOSARTAN. [Concomitant]
     Active Substance: LOSARTAN
     Indication: HYPERTENSION
     Route: 048
     Dates: start: 20180903, end: 20181215
  7. ESCITALOPRAM NORMON [Concomitant]
     Indication: DEPRESSION
     Dosage: 10 MG, UNK
     Route: 048
     Dates: start: 20150610
  8. ARICEPT [Interacting]
     Active Substance: DONEPEZIL HYDROCHLORIDE
     Indication: DEMENTIA
     Dosage: 10 MG, UNK
     Route: 048
     Dates: start: 20161123, end: 20181215

REACTIONS (3)
  - Haematochezia [Recovered/Resolved with Sequelae]
  - Tremor [Recovered/Resolved]
  - Dizziness [Recovered/Resolved]

NARRATIVE: CASE EVENT DATE: 201811
